FAERS Safety Report 8918178 (Version 1)
Quarter: 2012Q4

REPORT INFORMATION
  Report Type: 
  Country: US (occurrence: US)
  Receive Date: 20121120
  Receipt Date: 20121120
  Transmission Date: 20130627
  Serious: No
  Sender: FDA-Public Use
  Company Number: US-ASTRAZENECA-2012SE22823

PATIENT
  Sex: Male

DRUGS (2)
  1. NEXIUM [Suspect]
     Route: 048
  2. NIZATIDINE [Concomitant]

REACTIONS (4)
  - Haematemesis [Unknown]
  - Pain [Unknown]
  - Abdominal pain lower [Unknown]
  - Drug ineffective [Unknown]
